FAERS Safety Report 13503497 (Version 1)
Quarter: 2017Q2

REPORT INFORMATION
  Report Type: Other
  Country: FR (occurrence: FR)
  Receive Date: 20170502
  Receipt Date: 20170502
  Transmission Date: 20170830
  Serious: Yes (Other)
  Sender: FDA-Public Use
  Company Number: FR-ALSI-201700135

PATIENT
  Sex: Male

DRUGS (1)
  1. MEDICINAL OXYGEN [Suspect]
     Active Substance: OXYGEN
     Indication: OXYGEN THERAPY
     Route: 055
     Dates: start: 20170222, end: 20170222

REACTIONS (5)
  - Accidental underdose [Recovered/Resolved]
  - Oxygen saturation decreased [Recovered/Resolved]
  - Tachypnoea [Recovered/Resolved]
  - Product quality issue [Recovered/Resolved]
  - Device malfunction [None]
